FAERS Safety Report 20484200 (Version 1)
Quarter: 2022Q1

REPORT INFORMATION
  Report Type: Spontaneous
  Country: TW (occurrence: TW)
  Receive Date: 20220217
  Receipt Date: 20220217
  Transmission Date: 20220424
  Serious: Yes (Other)
  Sender: FDA-Public Use
  Company Number: TW-LUPIN PHARMACEUTICALS INC.-2022-02109

PATIENT
  Age: 38 Year
  Sex: Female

DRUGS (1)
  1. MEFENAMIC ACID [Suspect]
     Active Substance: MEFENAMIC ACID
     Indication: Product used for unknown indication
     Dosage: UNK
     Route: 065

REACTIONS (1)
  - Rash maculo-papular [Unknown]
